FAERS Safety Report 19074813 (Version 1)
Quarter: 2021Q1

REPORT INFORMATION
  Report Type: Spontaneous
  Country: PT (occurrence: PT)
  Receive Date: 20210330
  Receipt Date: 20210330
  Transmission Date: 20210420
  Serious: Yes (Other)
  Sender: FDA-Public Use
  Company Number: PT-PFIZER INC-2021287558

PATIENT
  Age: 76 Year
  Sex: Male
  Weight: 85 kg

DRUGS (4)
  1. ZARATOR [Suspect]
     Active Substance: ATORVASTATIN CALCIUM
     Dosage: 20 MG, 1X/DAY (1 PER DAY (AT DINNER)
     Route: 048
     Dates: start: 20210224, end: 20210224
  2. PANKREOFLAT [DIMETICONE;PANCREATIN] [Concomitant]
     Dosage: UNK
     Route: 048
  3. DIOVAN [Concomitant]
     Active Substance: VALSARTAN
     Dosage: UNK
     Route: 048
  4. LORENIN [Concomitant]
     Active Substance: LORAZEPAM
     Dosage: UNK
     Route: 048

REACTIONS (2)
  - Feeling hot [Recovered/Resolved]
  - Diarrhoea [Recovered/Resolved]

NARRATIVE: CASE EVENT DATE: 20210224
